FAERS Safety Report 18577659 (Version 1)
Quarter: 2020Q4

REPORT INFORMATION
  Report Type: Other
  Country: ZA (occurrence: ZA)
  Receive Date: 20201203
  Receipt Date: 20201203
  Transmission Date: 20210114
  Serious: Yes (Other)
  Sender: FDA-Public Use
  Company Number: ZA-ROCHE-2725807

PATIENT
  Age: 72 Year
  Sex: Male

DRUGS (2)
  1. LUCENTIS [Suspect]
     Active Substance: RANIBIZUMAB
     Indication: AGE-RELATED MACULAR DEGENERATION
     Route: 065
     Dates: start: 202002, end: 202010
  2. LUCENTIS [Suspect]
     Active Substance: RANIBIZUMAB
     Indication: AGE-RELATED MACULAR DEGENERATION
     Dosage: 0.5 MG, OTHER TREAT AND EXTEND
     Route: 047
     Dates: start: 201901

REACTIONS (1)
  - Retinal thickening [Unknown]

NARRATIVE: CASE EVENT DATE: 20200701
